FAERS Safety Report 17227860 (Version 3)
Quarter: 2020Q1

REPORT INFORMATION
  Report Type: Spontaneous
  Country: US (occurrence: US)
  Receive Date: 20200103
  Receipt Date: 20200226
  Transmission Date: 20200409
  Serious: Yes (Hospitalization, Other)
  Sender: FDA-Public Use
  Company Number: US-ROCHE-2506558

PATIENT
  Age: 58 Year
  Sex: Female
  Weight: 76.73 kg

DRUGS (1)
  1. CELLCEPT [Suspect]
     Active Substance: MYCOPHENOLATE MOFETIL\MYCOPHENOLATE MOFETIL HYDROCHLORIDE
     Indication: PROPHYLAXIS AGAINST TRANSPLANT REJECTION
     Route: 048
     Dates: start: 201205

REACTIONS (8)
  - Dehydration [Unknown]
  - Chest pain [Recovered/Resolved]
  - Blood electrolytes abnormal [Unknown]
  - Colitis [Unknown]
  - Malaise [Unknown]
  - Dyspnoea [Recovered/Resolved]
  - JC virus infection [Not Recovered/Not Resolved]
  - Blood sodium decreased [Unknown]

NARRATIVE: CASE EVENT DATE: 201911
